FAERS Safety Report 16673652 (Version 1)
Quarter: 2019Q3

REPORT INFORMATION
  Report Type: Report from Study
  Country: None (occurrence: CA)
  Receive Date: 20190806
  Receipt Date: 20190806
  Transmission Date: 20191004
  Serious: Yes (Hospitalization)
  Sender: FDA-Public Use
  Company Number: CA-ABBVIE-19K-028-2875766-00

PATIENT
  Age: 52 Year
  Sex: Female

DRUGS (1)
  1. HUMIRA [Suspect]
     Active Substance: ADALIMUMAB
     Indication: CROHN^S DISEASE
     Route: 058
     Dates: start: 20181016, end: 20190618

REACTIONS (3)
  - Depression [Unknown]
  - Uterine leiomyoma [Unknown]
  - Uterine leiomyoma embolisation [Unknown]

NARRATIVE: CASE EVENT DATE: 201903
